FAERS Safety Report 14683268 (Version 1)
Quarter: 2018Q1

REPORT INFORMATION
  Report Type: Spontaneous
  Country: US (occurrence: US)
  Receive Date: 20180326
  Receipt Date: 20180326
  Transmission Date: 20180509
  Serious: Yes (Disabling)
  Sender: FDA-Public Use
  Company Number: None

PATIENT
  Age: 77 Year
  Sex: Male
  Weight: 136.08 kg

DRUGS (10)
  1. PRADAXA [Suspect]
     Active Substance: DABIGATRAN ETEXILATE MESYLATE
     Indication: ANTICOAGULANT THERAPY
     Route: 048
     Dates: start: 20170820, end: 20170831
  2. TURMERIC [Concomitant]
     Active Substance: HERBALS\TURMERIC
  3. OXYGEN. [Concomitant]
     Active Substance: OXYGEN
  4. MULTI-VIT [Concomitant]
     Active Substance: VITAMINS
  5. DILTIAZEM. [Concomitant]
     Active Substance: DILTIAZEM
  6. FUROSEMIDE. [Concomitant]
     Active Substance: FUROSEMIDE
  7. WARFARIN [Concomitant]
     Active Substance: WARFARIN
  8. LISCINOPRIL [Concomitant]
     Active Substance: LISINOPRIL
  9. CPAP MACHINE [Concomitant]
  10. LUTEIN [Concomitant]
     Active Substance: LUTEIN

REACTIONS (2)
  - Dyspepsia [None]
  - Throat tightness [None]

NARRATIVE: CASE EVENT DATE: 20170820
